FAERS Safety Report 15785965 (Version 1)
Quarter: 2019Q1

REPORT INFORMATION
  Report Type: Spontaneous
  Country: None (occurrence: US)
  Receive Date: 20190103
  Receipt Date: 20190103
  Transmission Date: 20190417
  Serious: Yes (Hospitalization)
  Sender: FDA-Public Use
  Company Number: US-JIANGSU HENGRUI MEDICINE CO., LTD.-2060805

PATIENT
  Age: 67 Year
  Sex: Male

DRUGS (9)
  1. RITUXIMAB. [Concomitant]
     Active Substance: RITUXIMAB
  2. CYCLOPHOSPHAMIDE FOR INJECTION USP, 500 MG, 1 G AND 2 G PER SINGLE-DOS [Suspect]
     Active Substance: CYCLOPHOSPHAMIDE
     Indication: DIFFUSE LARGE B-CELL LYMPHOMA
  3. PREDNISONE. [Concomitant]
     Active Substance: PREDNISONE
  4. METHOTREXATE. [Concomitant]
     Active Substance: METHOTREXATE
  5. CARBOPLATIN. [Concomitant]
     Active Substance: CARBOPLATIN
  6. ETOPOSIDE. [Concomitant]
     Active Substance: ETOPOSIDE
  7. ONCOVIN [Concomitant]
     Active Substance: VINCRISTINE SULFATE
  8. IFOSFAMIDE. [Concomitant]
     Active Substance: IFOSFAMIDE
  9. HYDROXYDAUNOMYCIN [Concomitant]

REACTIONS (3)
  - Disease progression [None]
  - Back pain [None]
  - Pain in extremity [None]
